FAERS Safety Report 24362187 (Version 1)
Quarter: 2024Q3

REPORT INFORMATION
  Report Type: Spontaneous
  Country: US (occurrence: None)
  Receive Date: 20240924
  Receipt Date: 20240924
  Transmission Date: 20241017
  Serious: Yes (Disabling)
  Sender: Public
  Company Number: None

PATIENT
  Age: 43 Year
  Sex: Female
  Weight: 104.85 kg

DRUGS (2)
  1. SINEX [Suspect]
     Active Substance: ACETAMINOPHEN\DOXYLAMINE SUCCINATE\PHENYLEPHRINE HYDROCHLORIDE
     Indication: Drug therapy
  2. METFORMIN [Concomitant]

REACTIONS (6)
  - Nasopharyngitis [None]
  - Bronchitis [None]
  - Dyspnoea [None]
  - Anosmia [None]
  - Vision blurred [None]
  - Hearing aid user [None]

NARRATIVE: CASE EVENT DATE: 20240510
